FAERS Safety Report 10934700 (Version 4)
Quarter: 2015Q3

REPORT INFORMATION
  Report Type: Report from Study
  Country: JP (occurrence: JP)
  Receive Date: 20150320
  Receipt Date: 20150706
  Transmission Date: 20151125
  Serious: Yes (Death, Life-Threatening, Hospitalization)
  Sender: FDA-Public Use
  Company Number: JP-AMGEN-JPNCT2015026524

PATIENT
  Age: 54 Year
  Sex: Male
  Weight: 42 kg

DRUGS (9)
  1. PEGFILGRASTIM [Suspect]
     Active Substance: PEGFILGRASTIM
     Indication: PROPHYLAXIS
     Dosage: 3.6 MG, 1X/3WEEKS
     Route: 058
     Dates: start: 20150117
  2. POSTERISAN                         /00028601/ [Concomitant]
     Indication: RASH
     Dosage: UNK, PRN
     Route: 061
     Dates: start: 20141217
  3. RACOL [Concomitant]
     Active Substance: AMINO ACIDS\DEXTROSE\ELECTROLYTES NOS
     Indication: NUTRITIONAL SUPPLEMENTATION
     Dosage: 400 ML, TID
     Route: 050
     Dates: start: 20141210
  4. ZINC OXIDE. [Concomitant]
     Active Substance: ZINC OXIDE
     Indication: RASH
     Dosage: UNK, PRN
     Route: 061
     Dates: start: 20141217
  5. ADRIACIN [Suspect]
     Active Substance: DOXORUBICIN HYDROCHLORIDE
     Indication: LEIOMYOSARCOMA
     Dosage: 75 MG/M2, UNK
     Route: 065
     Dates: start: 20141217
  6. ADRIACIN [Suspect]
     Active Substance: DOXORUBICIN HYDROCHLORIDE
     Dosage: 56.25 MG/M2, UNK
     Route: 065
     Dates: start: 20150109, end: 20150227
  7. SODIUM CHLORIDE. [Concomitant]
     Active Substance: SODIUM CHLORIDE
     Indication: NUTRITIONAL SUPPLEMENTATION
     Dosage: 1 G, TID
     Route: 050
     Dates: start: 20141211
  8. WHITE PETROLATUM [Concomitant]
     Active Substance: PETROLATUM
     Indication: RASH
     Dosage: UNK, PRN
     Route: 061
     Dates: start: 20141217
  9. LANSOPRAZOLE. [Concomitant]
     Active Substance: LANSOPRAZOLE
     Indication: GASTRITIS PROPHYLAXIS
     Dosage: 1 DF, QD
     Route: 048
     Dates: start: 20150102

REACTIONS (2)
  - Tumour haemorrhage [Fatal]
  - Pneumonia [Not Recovered/Not Resolved]

NARRATIVE: CASE EVENT DATE: 20150311
